FAERS Safety Report 8919490 (Version 1)
Quarter: 2012Q4

REPORT INFORMATION
  Report Type: Spontaneous
  Country: DK (occurrence: None)
  Receive Date: 20121114
  Receipt Date: 20121114
  Transmission Date: 20130627
  Serious: Yes (Other)
  Sender: FDA-Public Use
  Company Number: 2012MA013304

PATIENT
  Sex: Male

DRUGS (3)
  1. RANITIDINE [Suspect]
  2. CALCIUM CITRATE [Suspect]
  3. CAFFEINE [Suspect]

REACTIONS (2)
  - Blood calcium increased [None]
  - Drug interaction [None]
